FAERS Safety Report 5033930-0 (Version None)
Quarter: 2006Q2

REPORT INFORMATION
  Report Type: 
  Country: None (occurrence: None)
  Receive Date: 20060623
  Receipt Date: 20060525
  Transmission Date: 20061013
  Serious: Yes (Hospitalization, Other)
  Sender: FDA-Public Use
  Company Number: US-AMGEN-KDL180978

PATIENT
  Sex: Female

DRUGS (3)
  1. ENBREL [Suspect]
     Indication: RHEUMATOID ARTHRITIS
     Route: 058
     Dates: start: 20060301
  2. ANTIBIOTICS [Suspect]
  3. METHOTREXATE [Concomitant]
     Route: 048
     Dates: start: 19960101

REACTIONS (8)
  - HEART RATE INCREASED [None]
  - IMPAIRED HEALING [None]
  - LOCAL SWELLING [None]
  - PHARYNGOLARYNGEAL PAIN [None]
  - PNEUMONIA [None]
  - PYREXIA [None]
  - VULVOVAGINAL MYCOTIC INFECTION [None]
  - WOUND [None]
